FAERS Safety Report 4772931-4 (Version None)
Quarter: 2005Q3

REPORT INFORMATION
  Report Type: 
  Country: None (occurrence: None)
  Receive Date: 20050916
  Receipt Date: 20050913
  Transmission Date: 20060218
  Serious: Yes (Death, Hospitalization)
  Sender: FDA-Public Use
  Company Number: A001-319-602

PATIENT
  Age: 92 Year
  Sex: Male
  Weight: 64 kg

DRUGS (5)
  1. DONEPEZIL HCL [Suspect]
     Indication: VASCULAR DEMENTIA
     Dosage: 5 MG, 1 IN 1 D, ORAL
     Route: 048
     Dates: start: 20031020, end: 20040204
  2. PERINDOPRIL (PERINDOPRIL) [Concomitant]
  3. FUROSEMIDE [Concomitant]
  4. TAMSULOSIN (TAMUSULOSIN) [Concomitant]
  5. LANSOPRAZOLE [Concomitant]

REACTIONS (6)
  - BRADYCARDIA [None]
  - CORONARY ARTERY ATHEROSCLEROSIS [None]
  - DIVERTICULITIS [None]
  - FALL [None]
  - MYOCARDIAL ISCHAEMIA [None]
  - TOOTHACHE [None]
